FAERS Safety Report 7427481-3 (Version None)
Quarter: 2011Q2

REPORT INFORMATION
  Report Type: 
  Country: None (occurrence: None)
  Receive Date: 20110420
  Receipt Date: 20110408
  Transmission Date: 20111010
  Serious: Yes (Other)
  Sender: FDA-Public Use
  Company Number: US-ELI_LILLY_AND_COMPANY-US201011003163

PATIENT
  Sex: Female
  Weight: 41 kg

DRUGS (3)
  1. FORTEO [Suspect]
     Dosage: 20 UG, DAILY (1/D)
  2. FORTEO [Suspect]
     Indication: OSTEOPOROSIS
     Dosage: 20 UG, DAILY (1/D)
     Dates: start: 20101103
  3. FORTEO [Suspect]
     Dosage: 20 UG, DAILY (1/D)

REACTIONS (19)
  - FOOT DEFORMITY [None]
  - HYPERSOMNIA [None]
  - ARTHRITIS [None]
  - FALL [None]
  - VITAMIN D DEFICIENCY [None]
  - WEIGHT DECREASED [None]
  - NASOPHARYNGITIS [None]
  - DIZZINESS [None]
  - MUSCLE SPASMS [None]
  - ABDOMINAL DISCOMFORT [None]
  - COUGH [None]
  - ARTERIOVENOUS MALFORMATION [None]
  - HYPOTENSION [None]
  - PYREXIA [None]
  - VOMITING [None]
  - ASTHENIA [None]
  - FEELING ABNORMAL [None]
  - SINUSITIS [None]
  - NAUSEA [None]
